FAERS Safety Report 6712771-X (Version None)
Quarter: 2010Q2

REPORT INFORMATION
  Report Type: 
  Country: None (occurrence: None)
  Receive Date: 20100506
  Receipt Date: 20100427
  Transmission Date: 20101027
  Serious: Yes (Hospitalization)
  Sender: FDA-Public Use
  Company Number: CH-JNJFOC-20100406759

PATIENT
  Age: 47 Year
  Sex: Female

DRUGS (6)
  1. RISPERDAL [Suspect]
     Indication: DRUG USE FOR UNKNOWN INDICATION
  2. RISPERDAL [Suspect]
  3. RISPERDAL [Suspect]
  4. INVEGA [Suspect]
     Indication: DRUG USE FOR UNKNOWN INDICATION
  5. INVEGA [Suspect]
  6. LORAZEPAM [Suspect]
     Indication: DRUG USE FOR UNKNOWN INDICATION
     Route: 065

REACTIONS (4)
  - DISTURBANCE IN ATTENTION [None]
  - DIZZINESS [None]
  - HYPOTONIA [None]
  - ORTHOSTATIC HYPOTENSION [None]
